FAERS Safety Report 23079885 (Version 1)
Quarter: 2023Q4

REPORT INFORMATION
  Report Type: Spontaneous
  Country: US (occurrence: US)
  Receive Date: 20231018
  Receipt Date: 20231018
  Transmission Date: 20240110
  Serious: No
  Sender: FDA-Public Use
  Company Number: US-La Jolla Pharmaceutical Company-2023TP000021

PATIENT

DRUGS (3)
  1. XERAVA [Suspect]
     Active Substance: ERAVACYCLINE DIHYDROCHLORIDE
     Indication: Bacterial infection
     Dosage: GREATER THAN 12 MONTHS
     Route: 042
  2. XERAVA [Suspect]
     Active Substance: ERAVACYCLINE DIHYDROCHLORIDE
     Route: 042
  3. MEROPENEM [Suspect]
     Active Substance: MEROPENEM
     Indication: Bacterial infection

REACTIONS (6)
  - Muscular weakness [Unknown]
  - Pigmentation disorder [Unknown]
  - Dizziness [Unknown]
  - Prescribed overdose [Unknown]
  - Off label use [Unknown]
  - Inappropriate schedule of product administration [Unknown]
